FAERS Safety Report 6464725-9 (Version None)
Quarter: 2009Q4

REPORT INFORMATION
  Report Type: 
  Country: None (occurrence: None)
  Receive Date: 20091201
  Receipt Date: 20091119
  Transmission Date: 20100525
  Serious: Yes (Hospitalization)
  Sender: FDA-Public Use
  Company Number: US-ELI_LILLY_AND_COMPANY-US200911005141

PATIENT
  Sex: Female

DRUGS (1)
  1. FORTEO [Suspect]
     Dosage: 20 UG, UNK
     Dates: start: 20091102, end: 20091101

REACTIONS (6)
  - DIZZINESS [None]
  - FALL [None]
  - HEADACHE [None]
  - JAW FRACTURE [None]
  - SYNCOPE [None]
  - WRIST FRACTURE [None]
